FAERS Safety Report 5289098-9 (Version None)
Quarter: 2007Q1

REPORT INFORMATION
  Report Type: 
  Country: None (occurrence: None)
  Receive Date: 20070124
  Receipt Date: 20060801
  Transmission Date: 20070707
  Serious: Yes (Hospitalization)
  Sender: FDA-Public Use
  Company Number: US200606002127

PATIENT
  Age: 88 Year
  Sex: Female
  Weight: 51 kg

DRUGS (7)
  1. FORTEO [Suspect]
     Indication: OSTEOPOROSIS
     Dosage: 20 UG, DAILY (1/D)
     Dates: start: 20041019
  2. FORTEO [Concomitant]
  3. DETROL [Concomitant]
  4. ASPIRIN [Concomitant]
  5. PROTONIX [Concomitant]
  6. CALCIUM (CALCIUM) [Concomitant]
  7. ZIAC [Concomitant]

REACTIONS (4)
  - CYSTITIS [None]
  - DIARRHOEA [None]
  - SYNCOPE [None]
  - VOMITING [None]
